FAERS Safety Report 13711161 (Version 3)
Quarter: 2017Q3

REPORT INFORMATION
  Report Type: Spontaneous
  Country: CN (occurrence: CN)
  Receive Date: 20170703
  Receipt Date: 20170804
  Transmission Date: 20171127
  Serious: Yes (Death, Life-Threatening)
  Sender: FDA-Public Use
  Company Number: CN-ROCHE-1958512

PATIENT
  Age: 42 Year
  Sex: Female
  Weight: 33 kg

DRUGS (2)
  1. DEXAMETHASONE. [Concomitant]
     Active Substance: DEXAMETHASONE
  2. HERCEPTIN [Suspect]
     Active Substance: TRASTUZUMAB
     Indication: BREAST CANCER
     Route: 041
     Dates: start: 20170630

REACTIONS (3)
  - Acidosis [Fatal]
  - Coma [Not Recovered/Not Resolved]
  - Organ failure [Fatal]

NARRATIVE: CASE EVENT DATE: 20170630
